FAERS Safety Report 9470436 (Version 2)
Quarter: 2013Q3

REPORT INFORMATION
  Report Type: Spontaneous
  Country: US (occurrence: US)
  Receive Date: 20130822
  Receipt Date: 20130822
  Transmission Date: 20140515
  Serious: Yes (Disabling)
  Sender: FDA-Public Use
  Company Number: US-BAYER-2013-099507

PATIENT
  Age: 59 Year
  Sex: Female
  Weight: 59.96 kg

DRUGS (1)
  1. AVELOX [Suspect]
     Dosage: UNK
     Dates: start: 20111229

REACTIONS (10)
  - Intraocular pressure increased [None]
  - Glare [None]
  - Iris disorder [None]
  - No therapeutic response [None]
  - Ocular hyperaemia [None]
  - Photopsia [None]
  - Photosensitivity reaction [None]
  - Pigment dispersion syndrome [None]
  - Pigmentary glaucoma [None]
  - Uveitis [None]
